FAERS Safety Report 15904964 (Version 3)
Quarter: 2019Q1

REPORT INFORMATION
  Report Type: Report from Study
  Country: MA (occurrence: MA)
  Receive Date: 20190204
  Receipt Date: 20190219
  Transmission Date: 20190417
  Serious: Yes (Other)
  Sender: FDA-Public Use
  Company Number: MA-EMD SERONO-9069295

PATIENT
  Age: 30 Year
  Sex: Male

DRUGS (3)
  1. REBIF [Suspect]
     Active Substance: INTERFERON BETA-1A
     Dates: start: 201810
  2. REBIF [Suspect]
     Active Substance: INTERFERON BETA-1A
     Indication: PRODUCT USED FOR UNKNOWN INDICATION
     Dates: start: 20180201, end: 2018
  3. REBIF [Suspect]
     Active Substance: INTERFERON BETA-1A
     Dates: start: 201808, end: 2018

REACTIONS (12)
  - Pyrexia [Recovering/Resolving]
  - Cognitive disorder [Not Recovered/Not Resolved]
  - Myalgia [Unknown]
  - Angina pectoris [Not Recovered/Not Resolved]
  - Eye pain [Recovering/Resolving]
  - Fatigue [Recovering/Resolving]
  - Chills [Recovering/Resolving]
  - Treatment noncompliance [Recovered/Resolved]
  - Dizziness [Recovering/Resolving]
  - Gait disturbance [Recovering/Resolving]
  - Heart rate increased [Recovering/Resolving]
  - Depression [Unknown]

NARRATIVE: CASE EVENT DATE: 2018
